FAERS Safety Report 10269666 (Version 1)
Quarter: 2014Q2

REPORT INFORMATION
  Report Type: Spontaneous
  Country: NL (occurrence: None)
  Receive Date: 20140625
  Receipt Date: 20140625
  Transmission Date: 20141212
  Serious: Yes (Hospitalization)
  Sender: FDA-Public Use
  Company Number: AUR-APL-2014-06701

PATIENT
  Age: 46 Year
  Sex: Male

DRUGS (4)
  1. SIMVASTATIN (SIMVASTATIN) UNKNOWN, UNKNOWN [Suspect]
     Indication: PRODUCT USED FOR UNKNOWN INDICATION
  2. TELAPREVIR (TELAPREVIR) [Suspect]
     Indication: ANTIVIRAL TREATMENT
  3. RIBAVIRIN (RIBAVIRIN) [Concomitant]
  4. PEGINTERFERON [Concomitant]

REACTIONS (4)
  - Rhabdomyolysis [None]
  - Drug interaction [None]
  - Blood creatine phosphokinase increased [None]
  - Drug clearance decreased [None]
